FAERS Safety Report 7320670-8 (Version None)
Quarter: 2011Q1

REPORT INFORMATION
  Report Type: 
  Country: None (occurrence: None)
  Receive Date: 20110228
  Receipt Date: 20110222
  Transmission Date: 20110831
  Serious: Yes (Death, Life-Threatening, Other)
  Sender: FDA-Public Use
  Company Number: PHHY2011JP10602

PATIENT
  Sex: Male

DRUGS (9)
  1. CARDENALIN [Concomitant]
     Indication: HYPERTENSION
     Dosage: 4 MG
     Dates: end: 20101123
  2. VALSARTAN, AMLODIPINE [Suspect]
     Indication: HYPERTENSION
     Dosage: 1 DF, DAIY
     Route: 048
     Dates: start: 20100709, end: 20101225
  3. NIRENA L [Concomitant]
     Indication: HYPERTENSION
     Dosage: 4 MG
     Dates: end: 20101123
  4. SODIUM CHLORIDE [Concomitant]
     Dosage: 4 G, UNK
     Route: 048
     Dates: start: 20090702, end: 20101207
  5. ALDACTONE [Concomitant]
     Dosage: 25 MG, UNK
     Dates: end: 20081107
  6. TAKEPRON [Concomitant]
     Dosage: 15 MG
     Dates: end: 20101227
  7. BIOFERMIN [Concomitant]
     Dosage: 6 DF, UNK
     Dates: end: 20101123
  8. RIVOTRIL [Concomitant]
     Dosage: 0.5 MG
     Dates: end: 20101207
  9. LASIX [Concomitant]
     Dosage: 20 MG
     Route: 048
     Dates: end: 20101123

REACTIONS (7)
  - BRADYCARDIA [None]
  - CARDIAC FAILURE [None]
  - HYPERKALAEMIA [None]
  - ATRIOVENTRICULAR BLOCK [None]
  - BLOOD PRESSURE DECREASED [None]
  - RENAL FAILURE [None]
  - GENERAL PHYSICAL HEALTH DETERIORATION [None]
